FAERS Safety Report 6057468-7 (Version None)
Quarter: 2009Q1

REPORT INFORMATION
  Report Type: 
  Country: None (occurrence: None)
  Receive Date: 20090126
  Receipt Date: 20090107
  Transmission Date: 20090719
  Serious: Yes (Death)
  Sender: FDA-Public Use
  Company Number: B0553732A

PATIENT
  Age: 40 Year
  Sex: Female

DRUGS (5)
  1. PAROXETINE HYDROCHLORIDE [Suspect]
     Dosage: ORAL
     Route: 048
  2. FENTANYL [Suspect]
  3. ETHANOL (FORMULATION UNKNOWN) (ALCOHOL) [Suspect]
  4. OXYCODONE HCL [Suspect]
  5. ZOLPIDEM TARTRATE [Suspect]

REACTIONS (1)
  - CARDIO-RESPIRATORY ARREST [None]
